FAERS Safety Report 13643385 (Version 1)
Quarter: 2017Q2

REPORT INFORMATION
  Report Type: Spontaneous
  Country: US (occurrence: US)
  Receive Date: 20170612
  Receipt Date: 20170612
  Transmission Date: 20170830
  Serious: Yes (Life-Threatening)
  Sender: FDA-Public Use
  Company Number: PHHY2017US082765

PATIENT
  Age: 63 Year
  Sex: Female

DRUGS (1)
  1. SULFAMETHOXAZOLE+TRIMETHOPRIM [Suspect]
     Active Substance: SULFAMETHOXAZOLE\TRIMETHOPRIM
     Indication: ESCHERICHIA BACTERAEMIA
     Route: 065

REACTIONS (6)
  - Mental status changes [Unknown]
  - Blood pressure increased [Unknown]
  - Haemolytic uraemic syndrome [Unknown]
  - Renal impairment [Not Recovered/Not Resolved]
  - Thrombocytopenia [Recovering/Resolving]
  - Haemolysis [Recovering/Resolving]
